FAERS Safety Report 8957882 (Version 1)
Quarter: 2012Q4

REPORT INFORMATION
  Report Type: 
  Country: US (occurrence: US)
  Receive Date: 20121211
  Receipt Date: 20121211
  Transmission Date: 20130627
  Serious: No
  Sender: FDA-Public Use
  Company Number: US-BIOGENIDEC-2012BI057191

PATIENT
  Sex: Female

DRUGS (5)
  1. TYSABRI [Suspect]
     Indication: MULTIPLE SCLEROSIS
     Route: 042
     Dates: start: 20101220
  2. GABAPENTIN [Concomitant]
     Indication: PARAESTHESIA
  3. GABAPENTIN [Concomitant]
     Indication: BURNING SENSATION
  4. BACLOFEN [Concomitant]
     Indication: MUSCULOSKELETAL STIFFNESS
  5. MOTRIN [Concomitant]
     Indication: HEADACHE

REACTIONS (6)
  - Hypoaesthesia [Recovered/Resolved]
  - Paraesthesia [Unknown]
  - Burning sensation [Unknown]
  - Musculoskeletal stiffness [Unknown]
  - Muscular weakness [Unknown]
  - Headache [Unknown]
